FAERS Safety Report 6740350-7 (Version None)
Quarter: 2010Q2

REPORT INFORMATION
  Report Type: 
  Country: None (occurrence: None)
  Receive Date: 20100525
  Receipt Date: 20100513
  Transmission Date: 20101027
  Serious: Yes (Other)
  Sender: FDA-Public Use
  Company Number: CZ-PFIZER INC-2010060785

PATIENT
  Age: 28 Year
  Sex: Female

DRUGS (4)
  1. SOLU-MEDROL [Suspect]
     Indication: MULTIPLE SCLEROSIS
     Dosage: 250 MG, PULS THERAPY
     Dates: start: 20081101
  2. PREDNISONE [Concomitant]
     Dosage: UNK
     Dates: start: 20000101, end: 20100401
  3. TETANUS ANTITOXIN [Concomitant]
     Dosage: UNK
     Dates: start: 20100507, end: 20100507
  4. MEDROL [Concomitant]
     Dosage: UNK

REACTIONS (12)
  - ACNE [None]
  - ALOPECIA [None]
  - CHEST PAIN [None]
  - DYSPNOEA [None]
  - HAIR GROWTH ABNORMAL [None]
  - HEADACHE [None]
  - HEART RATE INCREASED [None]
  - HYPERHIDROSIS [None]
  - HYPERVENTILATION [None]
  - NEURALGIA [None]
  - SWELLING FACE [None]
  - TINNITUS [None]
